FAERS Safety Report 20031008 (Version 3)
Quarter: 2021Q4

REPORT INFORMATION
  Report Type: Report from Study
  Country: JP (occurrence: JP)
  Receive Date: 20211103
  Receipt Date: 20211215
  Transmission Date: 20220303
  Serious: Yes (Other)
  Sender: FDA-Public Use
  Company Number: JP-MYLANLABS-2021M1077755

PATIENT
  Age: 24 Year
  Sex: Female
  Weight: 40.3 kg

DRUGS (14)
  1. CYSTEAMINE [Suspect]
     Active Substance: CYSTEAMINE
     Indication: Cystinosis
     Dosage: 450 MILLIGRAM, QID
     Route: 048
     Dates: start: 20141008
  2. PROGRAF [Concomitant]
     Active Substance: TACROLIMUS
     Indication: Product used for unknown indication
     Dosage: 6.0 MILLIGRAM, QD
     Route: 048
     Dates: start: 20200110, end: 20211007
  3. PROGRAF [Concomitant]
     Active Substance: TACROLIMUS
     Dosage: 7.0 MILLIGRAM, QD
     Route: 048
     Dates: start: 20211008
  4. LEVOTHYROXINE [Concomitant]
     Active Substance: LEVOTHYROXINE
     Indication: Product used for unknown indication
     Dosage: 125 MICROGRAM, QD
     Route: 048
     Dates: start: 20190315
  5. CELLCEPT                           /01275102/ [Concomitant]
     Indication: Product used for unknown indication
     Dosage: 500 MILLIGRAM, QD
     Route: 048
     Dates: start: 20171215
  6. APIDRA [Concomitant]
     Active Substance: INSULIN GLULISINE
     Indication: Product used for unknown indication
     Dosage: 18 DOSAGE FORM, QD
     Route: 058
     Dates: start: 20200925, end: 20210520
  7. APIDRA [Concomitant]
     Active Substance: INSULIN GLULISINE
     Dosage: 24 DOSAGE FORM, QD
     Route: 058
     Dates: start: 20210521, end: 20210624
  8. APIDRA [Concomitant]
     Active Substance: INSULIN GLULISINE
     Dosage: 30 DOSAGE FORM, QD
     Route: 058
     Dates: start: 20210625, end: 20210729
  9. APIDRA [Concomitant]
     Active Substance: INSULIN GLULISINE
     Dosage: 28 DOSAGE FORM, QD
     Route: 058
     Dates: start: 20210730
  10. INSULIN GLARGINE [Concomitant]
     Active Substance: INSULIN GLARGINE
     Indication: Product used for unknown indication
     Dosage: 7 DOSAGE FORM, QD
     Route: 058
     Dates: start: 20170915, end: 20210520
  11. INSULIN GLARGINE [Concomitant]
     Active Substance: INSULIN GLARGINE
     Dosage: 8 DOSAGE FORM, QD
     Route: 058
     Dates: start: 20210521, end: 20210624
  12. INSULIN GLARGINE [Concomitant]
     Active Substance: INSULIN GLARGINE
     Dosage: 10 DOSAGE FORM, QD
     Route: 058
     Dates: start: 20210625
  13. JANUVIA [Concomitant]
     Active Substance: SITAGLIPTIN PHOSPHATE
     Indication: Product used for unknown indication
     Dosage: 50 MILLIGRAM, QD
     Route: 048
     Dates: start: 20210625
  14. METGLUCO [Concomitant]
     Active Substance: METFORMIN HYDROCHLORIDE
     Indication: Product used for unknown indication
     Dosage: 500 MILLIGRAM, QD
     Route: 048
     Dates: start: 20210903

REACTIONS (2)
  - Corneal degeneration [Unknown]
  - Arteriovenous fistula [Not Recovered/Not Resolved]

NARRATIVE: CASE EVENT DATE: 20201030
